FAERS Safety Report 7217490-1 (Version None)
Quarter: 2011Q1

REPORT INFORMATION
  Report Type: 
  Country: None (occurrence: None)
  Receive Date: 20110110
  Receipt Date: 20101231
  Transmission Date: 20110831
  Serious: Yes (Death)
  Sender: FDA-Public Use
  Company Number: US-PFIZER INC-2011002893

PATIENT
  Age: 36 Year
  Sex: Female

DRUGS (5)
  1. DIPHENHYDRAMINE [Suspect]
     Route: 048
  2. VENLAFAXINE HCL [Suspect]
     Route: 048
  3. LISINOPRIL [Suspect]
     Dosage: UNK
     Route: 048
  4. COCAINE [Suspect]
  5. ESCITALOPRAM OXALATE [Suspect]
     Route: 048

REACTIONS (1)
  - COMPLETED SUICIDE [None]
